FAERS Safety Report 6930702-4 (Version None)
Quarter: 2010Q3

REPORT INFORMATION
  Report Type: 
  Country: None (occurrence: None)
  Receive Date: 20100809
  Receipt Date: 20091009
  Transmission Date: 20110219
  Serious: No
  Sender: FDA-Public Use
  Company Number: US-000651

PATIENT
  Sex: Male

DRUGS (1)
  1. DEGARELIX 120 MG [Suspect]
     Dosage: (240 MG SUBCUTANEOUS)
     Route: 058
     Dates: start: 20090713

REACTIONS (3)
  - INJECTION SITE ERYTHEMA [None]
  - INJECTION SITE REACTION [None]
  - INJECTION SITE WARMTH [None]
